FAERS Safety Report 8522255-4 (Version None)
Quarter: 2012Q3

REPORT INFORMATION
  Report Type: 
  Country: None (occurrence: None)
  Receive Date: 20120709
  Receipt Date: 20120703
  Transmission Date: 20120928
  Serious: Yes (Hospitalization)
  Sender: FDA-Public Use
  Company Number: ACO_30705_2012

PATIENT
  Age: 41 Year
  Sex: Female
  Weight: 135.6 kg

DRUGS (7)
  1. WARFARIN SODIUM [Concomitant]
  2. AMPYRA [Suspect]
     Indication: GAIT DISTURBANCE
     Dosage: 10 MG, BID, ORAL
     Route: 048
     Dates: start: 20110501, end: 20120606
  3. PROVIGIL [Concomitant]
  4. GABAPENTIN [Concomitant]
  5. ZOLPIDEM [Concomitant]
  6. OXYBUTYNIN [Concomitant]
  7. COPAXONE [Concomitant]

REACTIONS (5)
  - PULMONARY EMBOLISM [None]
  - GAIT DISTURBANCE [None]
  - DEEP VEIN THROMBOSIS [None]
  - ARTHRALGIA [None]
  - PAIN IN EXTREMITY [None]
